FAERS Safety Report 8274261-5 (Version None)
Quarter: 2012Q2

REPORT INFORMATION
  Report Type: 
  Country: None (occurrence: None)
  Receive Date: 20120411
  Receipt Date: 20120411
  Transmission Date: 20120825
  Serious: Yes (Disabling)
  Sender: FDA-Public Use
  Company Number: None

PATIENT
  Age: 29 Year
  Sex: Female
  Weight: 54.431 kg

DRUGS (2)
  1. ROCEPHIN [Suspect]
     Indication: SEPSIS
     Dosage: 2MG
     Route: 041
     Dates: start: 20120320, end: 20120410
  2. ROCEPHIN [Suspect]
     Indication: URINARY TRACT INFECTION
     Dosage: 2MG
     Route: 041
     Dates: start: 20120320, end: 20120410

REACTIONS (2)
  - INSOMNIA [None]
  - SEPSIS [None]
